FAERS Safety Report 16889580 (Version 3)
Quarter: 2021Q4

REPORT INFORMATION
  Report Type: Other
  Country: US (occurrence: None)
  Receive Date: 20191007
  Receipt Date: 20211224
  Transmission Date: 20220303
  Serious: Yes (Hospitalization, Other)
  Sender: FDA-Public Use
  Company Number: US-ROCHE-2431252

PATIENT
  Sex: Female

DRUGS (21)
  1. OCREVUS [Suspect]
     Active Substance: OCRELIZUMAB
     Indication: Primary progressive multiple sclerosis
     Dosage: 16/NOV/2017, 30/NOV/2017, 17/MAY/2018, 20/NOV/2018, 30/APR/2021, 20/APR/2020, 17/OCT/2019, 21/OCT/20
     Route: 042
  2. OCREVUS [Suspect]
     Active Substance: OCRELIZUMAB
     Indication: Relapsing multiple sclerosis
  3. POLYVINYL ALCOHOL [Concomitant]
     Active Substance: POLYVINYL ALCOHOL
  4. POLYETHYLENE GLYCOL [Concomitant]
     Active Substance: POLYETHYLENE GLYCOL
  5. OMEPRAZOLE [Concomitant]
     Active Substance: OMEPRAZOLE
  6. LIDOCAINE [Concomitant]
     Active Substance: LIDOCAINE
  7. GUAIFENESIN [Concomitant]
     Active Substance: GUAIFENESIN
  8. GABAPENTIN [Concomitant]
     Active Substance: GABAPENTIN
  9. FOLIC ACID [Concomitant]
     Active Substance: FOLIC ACID
  10. CHOLECALCIFEROL [Concomitant]
     Active Substance: CHOLECALCIFEROL
  11. CYANOCOBALAMIN [Concomitant]
     Active Substance: CYANOCOBALAMIN
  12. BACLOFEN [Concomitant]
     Active Substance: BACLOFEN
  13. ASPIRIN [Concomitant]
     Active Substance: ASPIRIN
  14. ATORVASTATIN [Concomitant]
     Active Substance: ATORVASTATIN
  15. ALBUTEROL [Concomitant]
     Active Substance: ALBUTEROL
  16. ACETAMINOPHEN [Concomitant]
     Active Substance: ACETAMINOPHEN
     Indication: Pain
     Route: 048
  17. GABAPENTIN [Concomitant]
     Active Substance: GABAPENTIN
  18. OXYBUTYNIN [Concomitant]
     Active Substance: OXYBUTYNIN
  19. CEPHALEXIN [Concomitant]
     Active Substance: CEPHALEXIN
  20. GLIPIZIDE [Concomitant]
     Active Substance: GLIPIZIDE
  21. TRAMADOL [Concomitant]
     Active Substance: TRAMADOL

REACTIONS (3)
  - Infection [Unknown]
  - Decubitus ulcer [Unknown]
  - Osteomyelitis [Unknown]
